FAERS Safety Report 7708159-5 (Version None)
Quarter: 2011Q3

REPORT INFORMATION
  Report Type: 
  Country: None (occurrence: None)
  Receive Date: 20110825
  Receipt Date: 20110817
  Transmission Date: 20111222
  Serious: No
  Sender: FDA-Public Use
  Company Number: US-BIOGENIDEC-2011BI019088

PATIENT
  Sex: Female

DRUGS (3)
  1. ANTI-DEPRESSANTS (NOS) [Concomitant]
     Indication: DEPRESSION
  2. TYSABRI [Suspect]
     Route: 042
  3. TYSABRI [Suspect]
     Indication: MULTIPLE SCLEROSIS
     Route: 042
     Dates: start: 20110314

REACTIONS (10)
  - PAIN [None]
  - DEPRESSION [None]
  - CONFUSIONAL STATE [None]
  - ASTHENIA [None]
  - BALANCE DISORDER [None]
  - SEASONAL ALLERGY [None]
  - MULTIPLE SCLEROSIS RELAPSE [None]
  - FATIGUE [None]
  - PAIN IN EXTREMITY [None]
  - DYSSTASIA [None]
